FAERS Safety Report 8166285-3 (Version None)
Quarter: 2012Q1

REPORT INFORMATION
  Report Type: 
  Country: None (occurrence: None)
  Receive Date: 20120227
  Receipt Date: 20110624
  Transmission Date: 20120608
  Serious: No
  Sender: FDA-Public Use
  Company Number: US-MYLANLABS-2011S1010777

PATIENT
  Age: 48 Year
  Sex: Female

DRUGS (3)
  1. AMNESTEEM [Suspect]
     Indication: ACNE
     Dosage: 6 TIMES PER WEEK
     Route: 048
  2. CLARAVIS [Suspect]
  3. SYNTHROID [Concomitant]

REACTIONS (1)
  - ABDOMINAL PAIN [None]
